FAERS Safety Report 14685936 (Version 1)
Quarter: 2018Q1

REPORT INFORMATION
  Report Type: Spontaneous
  Country: US (occurrence: US)
  Receive Date: 20180326
  Receipt Date: 20180326
  Transmission Date: 20180509
  Serious: No
  Sender: FDA-Public Use
  Company Number: None

PATIENT
  Age: 67 Year
  Sex: Female
  Weight: 96.75 kg

DRUGS (13)
  1. SIMVASTATIN. [Concomitant]
     Active Substance: SIMVASTATIN
  2. PROBIOTICS [Concomitant]
     Active Substance: PROBIOTICS NOS
  3. ZINC. [Concomitant]
     Active Substance: ZINC
  4. POT CHLORIDE [Concomitant]
     Active Substance: POTASSIUM CHLORIDE
  5. METOPROLOL. [Concomitant]
     Active Substance: METOPROLOL
  6. JARDIANCE [Suspect]
     Active Substance: EMPAGLIFLOZIN
     Indication: DIABETES MELLITUS
     Dosage: ?          QUANTITY:74 TABLET(S);?
     Route: 048
     Dates: start: 20171212, end: 20180118
  7. GLIPIZIDE. [Concomitant]
     Active Substance: GLIPIZIDE
  8. GNC ULTRA MEGAVITAMIN [Concomitant]
  9. ASA [Concomitant]
     Active Substance: ASPIRIN
  10. METFORMIN [Concomitant]
     Active Substance: METFORMIN HYDROCHLORIDE
  11. FUROSEMIDE. [Concomitant]
     Active Substance: FUROSEMIDE
  12. DIGOXIN. [Concomitant]
     Active Substance: DIGOXIN
  13. CARDIA [Concomitant]
     Active Substance: AJMALINE

REACTIONS (4)
  - Rash [None]
  - Pruritus [None]
  - Decreased appetite [None]
  - Joint swelling [None]

NARRATIVE: CASE EVENT DATE: 20180118
